FAERS Safety Report 5535269-3 (Version None)
Quarter: 2007Q4

REPORT INFORMATION
  Report Type: 
  Country: None (occurrence: None)
  Receive Date: 20071127
  Receipt Date: 20071127
  Transmission Date: 20080405
  Serious: No
  Sender: FDA-Public Use
  Company Number: None

PATIENT
  Age: 50 Year
  Sex: Female
  Weight: 81.6475 kg

DRUGS (1)
  1. CHANTIX [Suspect]
     Indication: SMOKING CESSATION THERAPY
     Dosage: STANDARD PACKAGE DIRECTIONS  SEE PKG DIRECTIONS  PO
     Route: 048
     Dates: start: 20071020, end: 20071024

REACTIONS (3)
  - DEPRESSION [None]
  - DRUG INTERACTION INHIBITION [None]
  - IRRITABILITY [None]
